FAERS Safety Report 5344235-2 (Version None)
Quarter: 2007Q2

REPORT INFORMATION
  Report Type: 
  Country: None (occurrence: None)
  Receive Date: 20070604
  Receipt Date: 20070521
  Transmission Date: 20071010
  Serious: Yes (Death, Hospitalization)
  Sender: FDA-Public Use
  Company Number: US-ELI_LILLY_AND_COMPANY-US200705005494

PATIENT
  Age: 51 Year
  Sex: Female

DRUGS (3)
  1. CYMBALTA [Suspect]
     Indication: DEPRESSION
     Dosage: 120 MG, UNK
     Dates: end: 20070101
  2. CYMBALTA [Suspect]
     Dosage: 180 MG, DAILY (1/D)
  3. WELLBUTRIN [Concomitant]

REACTIONS (5)
  - DEATH [None]
  - EAR HAEMORRHAGE [None]
  - EPISTAXIS [None]
  - PRESCRIBED OVERDOSE [None]
  - THERAPY REGIMEN CHANGED [None]
